FAERS Safety Report 10241755 (Version 2)
Quarter: 2014Q2

REPORT INFORMATION
  Report Type: Spontaneous
  Country: US (occurrence: None)
  Receive Date: 20140613
  Receipt Date: 20140623
  Transmission Date: 20141212
  Serious: Yes (Hospitalization, Other)
  Sender: FDA-Public Use
  Company Number: UNT-2014-001207

PATIENT
  Age: 64 Year
  Sex: Female
  Weight: 113.3 kg

DRUGS (3)
  1. REMODULIN [Suspect]
     Indication: PULMONARY ARTERIAL HYPERTENSION
     Route: 041
     Dates: start: 20090925
  2. ADCIRCA (TADALAFIL) [Concomitant]
  3. COUMADIN /00014802/ (WARFARIN SODIUM) [Concomitant]

REACTIONS (3)
  - Upper limb fracture [None]
  - Flushing [None]
  - Limb operation [None]
